FAERS Safety Report 24443049 (Version 2)
Quarter: 2024Q4

REPORT INFORMATION
  Report Type: Report from Study
  Country: CA (occurrence: CA)
  Receive Date: 20241016
  Receipt Date: 20241017
  Transmission Date: 20250115
  Serious: No
  Sender: ROCHE
  Company Number: CA-ROCHE-3576665

PATIENT
  Sex: Male
  Weight: 47.0 kg

DRUGS (1)
  1. HEMLIBRA [Suspect]
     Active Substance: EMICIZUMAB-KXWH
     Indication: Factor VIII deficiency
     Dosage: 3 MG/KG/WEEK FOR 4 WEEKS AND THEN 3 MG/KG EVERY 2 WEEKS
     Route: 058
     Dates: start: 20230516

REACTIONS (1)
  - Weight increased [Unknown]
